FAERS Safety Report 5482124-3 (Version None)
Quarter: 2007Q4

REPORT INFORMATION
  Report Type: 
  Country: None (occurrence: None)
  Receive Date: 20071011
  Receipt Date: 20071002
  Transmission Date: 20080405
  Serious: Yes (Other)
  Sender: FDA-Public Use
  Company Number: US-JNJFOC-20070804353

PATIENT
  Sex: Male
  Weight: 59 kg

DRUGS (4)
  1. REMICADE [Suspect]
     Indication: CROHN'S DISEASE
     Route: 042
  2. MULTI-VITAMIN [Concomitant]
  3. TYLENOL (CAPLET) [Concomitant]
  4. CALCIUM [Concomitant]
     Dosage: 1-2

REACTIONS (1)
  - HISTOPLASMOSIS [None]
